FAERS Safety Report 24463414 (Version 1)
Quarter: 2024Q4

REPORT INFORMATION
  Report Type: Report from Study
  Country: US (occurrence: US)
  Receive Date: 20241018
  Receipt Date: 20241018
  Transmission Date: 20250115
  Serious: No
  Sender: ROCHE
  Company Number: US-ROCHE-3062910

PATIENT
  Age: 75 Year
  Sex: Female
  Weight: 70.3 kg

DRUGS (8)
  1. XOLAIR [Suspect]
     Active Substance: OMALIZUMAB
     Indication: Urticaria
     Route: 058
  2. XOLAIR [Suspect]
     Active Substance: OMALIZUMAB
     Indication: Idiopathic urticaria
  3. AZELASTINE HYDROCHLORIDE [Concomitant]
     Active Substance: AZELASTINE HYDROCHLORIDE
     Dosage: 0.1% NASAL SOLUTION SPRAY, 1 SPRAY IN EACH NOSTRIL TWICE DAILY, 30 DAYS, 11 REFILLS
  4. CETIRIZINE HCL [Concomitant]
     Active Substance: CETIRIZINE HYDROCHLORIDE
     Dosage: 90 DAYS, 3 REFILLS
     Route: 048
  5. HYDROXYZINE HYDROCHLORIDE [Concomitant]
     Active Substance: HYDROXYZINE HYDROCHLORIDE
     Dosage: USE 1-2 TABLETS AT BEDTIME, 90 DAYS
     Route: 048
  6. SINGULAIR [Concomitant]
     Active Substance: MONTELUKAST SODIUM
     Dosage: 1 TABLET DAILY AT BEDTIME OR DINNER
     Route: 048
  7. ZYRTEC [Concomitant]
     Active Substance: CETIRIZINE HYDROCHLORIDE
  8. CIMETIDINE [Concomitant]
     Active Substance: CIMETIDINE
     Dosage: 1/2 TABLET AT NIGHT, IF DOING WELL- STOP AND TAKE ONLY IF NEEDED

REACTIONS (17)
  - Peripheral swelling [Unknown]
  - Paranasal sinus discomfort [Unknown]
  - Swelling of eyelid [Unknown]
  - Eye pruritus [Unknown]
  - Dry eye [Unknown]
  - Rhinorrhoea [Unknown]
  - Ear disorder [Unknown]
  - Dry skin [Unknown]
  - Pruritus [Unknown]
  - Fatigue [Unknown]
  - Snoring [Unknown]
  - Dry mouth [Unknown]
  - Cough [Unknown]
  - Anxiety [Unknown]
  - Urticaria [Not Recovered/Not Resolved]
  - Peripheral swelling [Recovered/Resolved]
  - Lip swelling [Recovered/Resolved]

NARRATIVE: CASE EVENT DATE: 20240307
